FAERS Safety Report 14404124 (Version 1)
Quarter: 2018Q1

REPORT INFORMATION
  Report Type: Spontaneous
  Country: US (occurrence: US)
  Receive Date: 20180117
  Receipt Date: 20180117
  Transmission Date: 20180509
  Serious: No
  Sender: FDA-Public Use
  Company Number: US-PFIZER INC-2018018129

PATIENT
  Age: 62 Year
  Sex: Female
  Weight: 96 kg

DRUGS (2)
  1. TIKOSYN [Suspect]
     Active Substance: DOFETILIDE
     Indication: ATRIAL FIBRILLATION
  2. TIKOSYN [Suspect]
     Active Substance: DOFETILIDE
     Indication: CARDIAC FAILURE CONGESTIVE
     Dosage: 500MG CAPSULE IN THE MORNING AND 500MG IN THE EVENING; 12 HOUR SPAN IN BETWEEN DOSES
     Route: 048
     Dates: start: 201712

REACTIONS (1)
  - Dizziness [Not Recovered/Not Resolved]

NARRATIVE: CASE EVENT DATE: 201712
